FAERS Safety Report 4900065-4 (Version None)
Quarter: 2006Q1

REPORT INFORMATION
  Report Type: 
  Country: None (occurrence: None)
  Receive Date: 20060131
  Receipt Date: 20060125
  Transmission Date: 20060701
  Serious: Yes (Hospitalization)
  Sender: FDA-Public Use
  Company Number: 1992

PATIENT
  Age: 17 Year
  Sex: Female

DRUGS (2)
  1. AMNESTEEM [Suspect]
     Indication: ACNE
     Dosage: 20 MG TID PO
     Route: 048
     Dates: start: 20050401, end: 20051101
  2. ZYRTEC [Concomitant]

REACTIONS (14)
  - ALOPECIA [None]
  - ARTHRALGIA [None]
  - ASTHENIA [None]
  - CHAPPED LIPS [None]
  - CSF TEST ABNORMAL [None]
  - DEPRESSION [None]
  - DIZZINESS [None]
  - FIBROMYALGIA [None]
  - HEADACHE [None]
  - MYALGIA [None]
  - TREMOR [None]
  - VISUAL DISTURBANCE [None]
  - VITAMIN A INCREASED [None]
  - WEIGHT DECREASED [None]
